FAERS Safety Report 21418063 (Version 1)
Quarter: 2022Q4

REPORT INFORMATION
  Report Type: Spontaneous
  Country: US (occurrence: None)
  Receive Date: 20221005
  Receipt Date: 20221005
  Transmission Date: 20230113
  Serious: Yes (Hospitalization, Other)
  Sender: FDA-Public Use
  Company Number: None

PATIENT
  Age: 40 Year
  Sex: Female
  Weight: 94.5 kg

DRUGS (7)
  1. MOUNJARO [Suspect]
     Active Substance: TIRZEPATIDE
     Indication: Polycystic ovaries
     Dosage: FREQUENCY : WEEKLY;?
     Route: 058
     Dates: start: 20220923, end: 20221001
  2. EFFEXOR [Concomitant]
     Active Substance: VENLAFAXINE HYDROCHLORIDE
  3. WELLBUTRIN [Concomitant]
     Active Substance: BUPROPION HYDROCHLORIDE
  4. SINGULAIR [Concomitant]
     Active Substance: MONTELUKAST SODIUM
  5. MOUNJARO [Concomitant]
     Active Substance: TIRZEPATIDE
  6. Irbesarten [Concomitant]
  7. XANAX [Concomitant]
     Active Substance: ALPRAZOLAM

REACTIONS (5)
  - Dyspnoea exertional [None]
  - Heart rate increased [None]
  - Dyspnoea [None]
  - Anxiety [None]
  - Troponin increased [None]

NARRATIVE: CASE EVENT DATE: 20220930
